FAERS Safety Report 25991218 (Version 1)
Quarter: 2025Q4

REPORT INFORMATION
  Report Type: Spontaneous
  Country: US (occurrence: US)
  Receive Date: 20251103
  Receipt Date: 20251103
  Transmission Date: 20260118
  Serious: No
  Sender: SANOFI AVENTIS
  Company Number: US-SA-2025SA316482

PATIENT
  Age: 24 Year
  Sex: Male
  Weight: 65.77 kg

DRUGS (4)
  1. DUPIXENT [Suspect]
     Active Substance: DUPILUMAB
     Indication: Eosinophilic oesophagitis
     Dosage: 300 MG, QW
     Route: 058
  2. DUPIXENT [Suspect]
     Active Substance: DUPILUMAB
     Dosage: 300 MG, QW
     Route: 058
     Dates: start: 202510
  3. BUDESONIDE [Concomitant]
     Active Substance: BUDESONIDE
  4. PANTOPRAZOLE [Concomitant]
     Active Substance: PANTOPRAZOLE

REACTIONS (6)
  - Oropharyngeal discomfort [Unknown]
  - Dyspnoea [Unknown]
  - Product dose omission issue [Unknown]
  - Chest pain [Unknown]
  - Proctitis [Unknown]
  - Arthralgia [Recovering/Resolving]
